FAERS Safety Report 7232672-0 (Version None)
Quarter: 2011Q1

REPORT INFORMATION
  Report Type: 
  Country: None (occurrence: None)
  Receive Date: 20110106
  Receipt Date: 20101123
  Transmission Date: 20110831
  Serious: Yes (Other)
  Sender: FDA-Public Use
  Company Number: 2010P1002847

PATIENT
  Age: 56 Year
  Sex: Male
  Weight: 95.2554 kg

DRUGS (14)
  1. ADVAIR (FLUTICASONE AND SALMETEROL) 250/50 [Concomitant]
  2. VICODIN 500 [Concomitant]
  3. FISH OIL [Concomitant]
  4. OMEPRAZOLE [Concomitant]
  5. LOVASTATIN [Concomitant]
  6. ALBUTEROL INHALER [Concomitant]
  7. LISINOPRIL [Concomitant]
  8. CENTRUM SILVER [Concomitant]
  9. FLAX SEED OIL [Concomitant]
  10. CLONAZEPAM [Concomitant]
  11. FENTANYL-25 [Suspect]
     Indication: BACK PAIN
     Dosage: 25 MCG/HR;Q48HR;TDER
     Route: 062
     Dates: start: 20070101, end: 20101111
  12. CELEBREX [Concomitant]
  13. LEVOTHYROXINE SODIUM [Concomitant]
  14. LORATADINE [Concomitant]

REACTIONS (11)
  - PSYCHOMOTOR HYPERACTIVITY [None]
  - SUICIDAL IDEATION [None]
  - WITHDRAWAL SYNDROME [None]
  - ASTHMA [None]
  - LETHARGY [None]
  - WEIGHT DECREASED [None]
  - PRODUCT QUALITY ISSUE [None]
  - TOXICITY TO VARIOUS AGENTS [None]
  - MIDDLE INSOMNIA [None]
  - INITIAL INSOMNIA [None]
  - PRODUCT SUBSTITUTION ISSUE [None]
